FAERS Safety Report 21842111 (Version 7)
Quarter: 2023Q1

REPORT INFORMATION
  Report Type: Spontaneous
  Country: US (occurrence: US)
  Receive Date: 20230110
  Receipt Date: 20230302
  Transmission Date: 20230418
  Serious: Yes (Life-Threatening, Hospitalization, Other)
  Sender: FDA-Public Use
  Company Number: US-UNITED THERAPEUTICS-UNT-2023-000256

PATIENT
  Age: 69 Year
  Sex: Female
  Weight: 81.179 kg

DRUGS (6)
  1. REMODULIN [Suspect]
     Active Substance: TREPROSTINIL
     Indication: Pulmonary arterial hypertension
     Dosage: 0.048 ?G/KG, CONTINUING
     Route: 058
  2. REMODULIN [Suspect]
     Active Substance: TREPROSTINIL
     Dosage: UNK (AT A RATE OF 0.034 MILLILITERS/HOUR), CONTINUING
     Route: 058
  3. REMODULIN [Suspect]
     Active Substance: TREPROSTINIL
     Dosage: UNK (AT A RATE OF 0.04 MILLILITERS/HOUR), CONTINUING
     Route: 058
     Dates: start: 202301
  4. REMODULIN [Suspect]
     Active Substance: TREPROSTINIL
     Dosage: 0.058 ?G/KG, CONTINUING (UP-TITRATED)
     Route: 058
     Dates: start: 202301
  5. REMODULIN [Suspect]
     Active Substance: TREPROSTINIL
     Dosage: 0.049 ?G/KG, CONTINUING (REDUCED)
     Route: 058
     Dates: start: 202301
  6. REMODULIN [Suspect]
     Active Substance: TREPROSTINIL
     Dosage: UNK, CONTINUING
     Route: 058
     Dates: start: 20161230

REACTIONS (11)
  - Acute respiratory failure [Unknown]
  - Pulmonary arterial hypertension [Unknown]
  - Oxygen saturation decreased [Unknown]
  - Epistaxis [Unknown]
  - Palpitations [Unknown]
  - Fluid retention [Unknown]
  - Blood pressure increased [Unknown]
  - Weight increased [Unknown]
  - Diabetes mellitus [Unknown]
  - Interstitial lung disease [Unknown]
  - Laboratory test abnormal [Unknown]

NARRATIVE: CASE EVENT DATE: 20230101
